FAERS Safety Report 18265427 (Version 1)
Quarter: 2020Q3

REPORT INFORMATION
  Report Type: Other
  Country: US (occurrence: US)
  Receive Date: 20200914
  Receipt Date: 20200914
  Transmission Date: 20201103
  Serious: No
  Sender: FDA-Public Use
  Company Number: US-LEADIANT BIOSCIENCES INC-2020STPI000166

PATIENT
  Sex: Male

DRUGS (2)
  1. GLEOSTINE [Concomitant]
     Active Substance: LOMUSTINE
     Dosage: 100MG, 200MG ON DAY 1 OF CHEMOTHERAPY CYCLE
     Route: 048
  2. MATULANE [Suspect]
     Active Substance: PROCARBAZINE HYDROCHLORIDE
     Indication: BRAIN NEOPLASM MALIGNANT
     Dosage: 150 MG (3 CAPSULES) DAILY ON DAYS 8?21
     Route: 048
     Dates: start: 20200211

REACTIONS (1)
  - Urticaria [Not Recovered/Not Resolved]
